FAERS Safety Report 5472118-6 (Version None)
Quarter: 2007Q3

REPORT INFORMATION
  Report Type: 
  Country: None (occurrence: None)
  Receive Date: 20070928
  Receipt Date: 20070920
  Transmission Date: 20080115
  Serious: Yes (Death)
  Sender: FDA-Public Use
  Company Number: AU-ABBOTT-07P-008-0372397-00

PATIENT
  Age: 36 Year
  Sex: Female

DRUGS (3)
  1. EPILIM [Suspect]
     Indication: AFFECTIVE DISORDER
     Route: 048
  2. EPILIM [Suspect]
     Indication: EPILEPSY
     Route: 048
  3. CLOZAPINE [Suspect]
     Indication: DRUG USE FOR UNKNOWN INDICATION

REACTIONS (3)
  - ARRHYTHMIA [None]
  - DRUG LEVEL THERAPEUTIC [None]
  - SUDDEN UNEXPLAINED DEATH IN EPILEPSY [None]
